FAERS Safety Report 21220246 (Version 1)
Quarter: 2022Q3

REPORT INFORMATION
  Report Type: Report from Study
  Country: US (occurrence: US)
  Receive Date: 20220817
  Receipt Date: 20220817
  Transmission Date: 20221026
  Serious: Yes (Disabling, Other)
  Sender: FDA-Public Use
  Company Number: US-BRISTOL-MYERS SQUIBB COMPANY-2022-071465

PATIENT
  Age: 51 Year
  Sex: Female
  Weight: 71.66 kg

DRUGS (2)
  1. REVLIMID [Suspect]
     Active Substance: LENALIDOMIDE
     Indication: Plasma cell myeloma
     Route: 048
     Dates: start: 202104
  2. REVLIMID [Suspect]
     Active Substance: LENALIDOMIDE
     Dosage: ONCE DAILY FOR 28 DAYS FOR MAINTENANCE
     Route: 048
     Dates: start: 202104

REACTIONS (3)
  - Respiratory tract infection [Not Recovered/Not Resolved]
  - Back disorder [Unknown]
  - Fatigue [Unknown]
